FAERS Safety Report 4862342-5 (Version None)
Quarter: 2005Q4

REPORT INFORMATION
  Report Type: 
  Country: None (occurrence: None)
  Receive Date: 20051221
  Receipt Date: 20051209
  Transmission Date: 20060501
  Serious: Yes (Other)
  Sender: FDA-Public Use
  Company Number: CA-BRISTOL-MYERS SQUIBB COMPANY-13218342

PATIENT
  Age: 79 Year
  Sex: Male

DRUGS (16)
  1. TEQUIN [Suspect]
  2. ASPIRIN [Concomitant]
  3. COLACE [Concomitant]
  4. COMBIVENT [Concomitant]
  5. DIAMICRON [Concomitant]
  6. DULCOLAX [Concomitant]
  7. COUMADIN [Concomitant]
  8. FLORINEF [Concomitant]
  9. FLOVENT [Concomitant]
  10. K-DUR 10 [Concomitant]
  11. LASIX [Concomitant]
  12. SODIUM CHLORIDE 0.9% [Concomitant]
  13. NEXIUM [Concomitant]
  14. PAXIL [Concomitant]
  15. SERAX [Concomitant]
  16. SYNTHROID [Concomitant]

REACTIONS (2)
  - HYPERGLYCAEMIA [None]
  - HYPOGLYCAEMIA [None]
